FAERS Safety Report 6005154-1 (Version None)
Quarter: 2008Q4

REPORT INFORMATION
  Report Type: 
  Country: None (occurrence: None)
  Receive Date: 20081216
  Receipt Date: 20071222
  Transmission Date: 20090506
  Serious: No
  Sender: FDA-Public Use
  Company Number: US-AMGEN-KDL258040

PATIENT
  Sex: Female

DRUGS (3)
  1. ENBREL [Suspect]
     Indication: RHEUMATOID ARTHRITIS
     Route: 058
     Dates: start: 20071021
  2. PLAQUENIL [Concomitant]
     Dates: start: 20020101
  3. METHOTREXATE [Concomitant]
     Dates: start: 20060101

REACTIONS (3)
  - DYSPHONIA [None]
  - PRURITUS [None]
  - THROAT IRRITATION [None]
